FAERS Safety Report 25518570 (Version 1)
Quarter: 2025Q3

REPORT INFORMATION
  Report Type: Spontaneous
  Country: US (occurrence: US)
  Receive Date: 20250704
  Receipt Date: 20250704
  Transmission Date: 20251021
  Serious: No
  Sender: BAXTER
  Company Number: US-BAXTER-2025BAX017574

PATIENT
  Age: 29 Year

DRUGS (8)
  1. CYCLOPHOSPHAMIDE [Suspect]
     Active Substance: CYCLOPHOSPHAMIDE
     Indication: Haematological malignancy
     Route: 065
  2. IMATINIB [Concomitant]
     Active Substance: IMATINIB
     Indication: Haematological malignancy
     Route: 065
  3. RUXOLITINIB [Concomitant]
     Active Substance: RUXOLITINIB
     Indication: Haematological malignancy
     Route: 065
  4. CLADRIBINE [Concomitant]
     Active Substance: CLADRIBINE
     Indication: Haematological malignancy
     Route: 065
  5. MIDOSTAURIN [Concomitant]
     Active Substance: MIDOSTAURIN
     Indication: Haematological malignancy
     Route: 065
  6. AVAPRITINIB [Concomitant]
     Active Substance: AVAPRITINIB
     Indication: Haematological malignancy
     Route: 065
  7. PREDNISONE [Concomitant]
     Active Substance: PREDNISONE
     Indication: Haematological malignancy
     Route: 065
  8. COBIMETINIB [Concomitant]
     Active Substance: COBIMETINIB
     Indication: Haematological malignancy
     Route: 065

REACTIONS (7)
  - Dyspepsia [Unknown]
  - Bone pain [Unknown]
  - Quality of life decreased [Unknown]
  - Nausea [Unknown]
  - Abdominal pain [Unknown]
  - Fatigue [Unknown]
  - Drug ineffective [Unknown]

NARRATIVE: CASE EVENT DATE: 20250618
